FAERS Safety Report 25949110 (Version 1)
Quarter: 2025Q4

REPORT INFORMATION
  Report Type: Spontaneous
  Country: US (occurrence: None)
  Receive Date: 20251022
  Receipt Date: 20251022
  Transmission Date: 20260118
  Serious: No
  Sender: FDA-CTU
  Company Number: None

PATIENT

DRUGS (1)
  1. ABIRATERONE [Suspect]
     Active Substance: ABIRATERONE

REACTIONS (5)
  - Fall [None]
  - Cerebral haemorrhage [None]
  - Seizure [None]
  - Product dose omission in error [None]
  - Diarrhoea [None]
